FAERS Safety Report 12523426 (Version 3)
Quarter: 2016Q3

REPORT INFORMATION
  Report Type: Spontaneous
  Country: US (occurrence: US)
  Receive Date: 20160703
  Receipt Date: 20160808
  Transmission Date: 20161109
  Serious: No
  Sender: FDA-Public Use
  Company Number: US-BEH-2016062661

PATIENT
  Sex: Female
  Weight: 63 kg

DRUGS (30)
  1. SALINE FLUSH [Concomitant]
     Active Substance: SODIUM CHLORIDE
  2. MOTRIN [Concomitant]
     Active Substance: IBUPROFEN
  3. HERCEPTIN [Concomitant]
     Active Substance: TRASTUZUMAB
  4. LASIX [Concomitant]
     Active Substance: FUROSEMIDE
  5. HIZENTRA [Suspect]
     Active Substance: HUMAN IMMUNOGLOBULIN G
     Indication: IMMUNODEFICIENCY COMMON VARIABLE
     Route: 058
     Dates: start: 20120320
  6. RESTASIS [Concomitant]
     Active Substance: CYCLOSPORINE
  7. FEMARA [Concomitant]
     Active Substance: LETROZOLE
  8. CLOMIPRAMINE [Concomitant]
     Active Substance: CLOMIPRAMINE
  9. PROZAC [Concomitant]
     Active Substance: FLUOXETINE HYDROCHLORIDE
  10. POTASSIUM [Concomitant]
     Active Substance: POTASSIUM
  11. VASOTEC [Concomitant]
     Active Substance: ENALAPRIL MALEATE
  12. DULOXETINE. [Concomitant]
     Active Substance: DULOXETINE
  13. DIPHENHYDRAMINE. [Concomitant]
     Active Substance: DIPHENHYDRAMINE
  14. NEURONTIN [Concomitant]
     Active Substance: GABAPENTIN
  15. ATENOLOL. [Concomitant]
     Active Substance: ATENOLOL
  16. CLONAZEPAM. [Concomitant]
     Active Substance: CLONAZEPAM
  17. ASPIRIN. [Concomitant]
     Active Substance: ASPIRIN
  18. CLONIDINE. [Concomitant]
     Active Substance: CLONIDINE
  19. CALCIUM [Concomitant]
     Active Substance: CALCIUM
  20. ARGININE [Concomitant]
     Active Substance: ARGININE
  21. HEPARIN [Concomitant]
     Active Substance: HEPARIN SODIUM
  22. TYLENOL [Concomitant]
     Active Substance: ACETAMINOPHEN
  23. VITAMIN [Concomitant]
     Active Substance: VITAMINS
  24. LMX [Concomitant]
     Active Substance: LIDOCAINE
  25. COREG [Concomitant]
     Active Substance: CARVEDILOL
  26. SYNTHROID [Concomitant]
     Active Substance: LEVOTHYROXINE SODIUM
  27. EPIPEN [Concomitant]
     Active Substance: EPINEPHRINE
  28. LIDODERM [Concomitant]
     Active Substance: LIDOCAINE
  29. BENADRYL [Concomitant]
     Active Substance: DIPHENHYDRAMINE HYDROCHLORIDE
  30. REQUIP [Concomitant]
     Active Substance: ROPINIROLE HYDROCHLORIDE

REACTIONS (2)
  - Limb injury [Unknown]
  - Ankle fracture [Unknown]
